FAERS Safety Report 17665127 (Version 1)
Quarter: 2020Q2

REPORT INFORMATION
  Report Type: Spontaneous
  Country: CN (occurrence: CN)
  Receive Date: 20200414
  Receipt Date: 20200414
  Transmission Date: 20200713
  Serious: Yes (Other)
  Sender: FDA-Public Use
  Company Number: CN-PFIZER INC-2020152053

PATIENT
  Age: 31 Year
  Sex: Female
  Weight: 75 kg

DRUGS (2)
  1. METHOTREXATE SODIUM. [Suspect]
     Active Substance: METHOTREXATE SODIUM
     Indication: CHEMOTHERAPY
     Dosage: 20 MG, ONCE A DAY
     Route: 041
     Dates: start: 20200218, end: 20200218
  2. METHOTREXATE SODIUM. [Suspect]
     Active Substance: METHOTREXATE SODIUM
     Indication: BONE SARCOMA

REACTIONS (3)
  - Bone marrow failure [Recovering/Resolving]
  - Oral mucosal eruption [Recovering/Resolving]
  - Oesophageal mucosal tear [Recovering/Resolving]

NARRATIVE: CASE EVENT DATE: 20200227
